FAERS Safety Report 5492778-3 (Version None)
Quarter: 2007Q4

REPORT INFORMATION
  Report Type: 
  Country: None (occurrence: None)
  Receive Date: 20071023
  Receipt Date: 20071015
  Transmission Date: 20080405
  Serious: Yes (Hospitalization, Other)
  Sender: FDA-Public Use
  Company Number: PHEH2007US12299

PATIENT
  Age: 17 Year
  Sex: Male
  Weight: 60.7 kg

DRUGS (7)
  1. LOPRESSOR [Concomitant]
  2. EXJADE [Suspect]
     Indication: IRON OVERLOAD
     Dosage: 1500MG, QD
     Route: 048
     Dates: start: 20060524, end: 20070731
  3. DEMEROL [Concomitant]
  4. BACTRIM [Concomitant]
  5. FOLIC ACID [Concomitant]
     Indication: SICKLE CELL ANAEMIA
     Dosage: 1 MG, QD
     Route: 048
     Dates: start: 19890101
  6. ASPIRIN [Concomitant]
     Indication: CEREBROVASCULAR ACCIDENT
     Dosage: 81 MG, QD
     Route: 048
     Dates: start: 20031001
  7. TRILEPTAL [Concomitant]
     Indication: CONVULSION
     Dosage: 600 MG, BID
     Route: 048
     Dates: start: 20050511

REACTIONS (13)
  - ABDOMINAL PAIN [None]
  - ARTHRALGIA [None]
  - ARTHRITIS [None]
  - COLLAGEN-VASCULAR DISEASE [None]
  - DECREASED APPETITE [None]
  - DIARRHOEA [None]
  - DYSPEPSIA [None]
  - HAEMATURIA [None]
  - NARCOLEPSY [None]
  - NAUSEA [None]
  - SYSTEMIC LUPUS ERYTHEMATOSUS [None]
  - VOMITING [None]
  - WEIGHT DECREASED [None]
